FAERS Safety Report 25062827 (Version 2)
Quarter: 2025Q1

REPORT INFORMATION
  Report Type: Spontaneous
  Country: US (occurrence: US)
  Receive Date: 20250311
  Receipt Date: 20250317
  Transmission Date: 20250408
  Serious: No
  Sender: ROCHE
  Company Number: US-ROCHE-10000226121

PATIENT
  Age: 64 Year
  Sex: Female

DRUGS (3)
  1. XOLAIR [Suspect]
     Active Substance: OMALIZUMAB
     Indication: Product used for unknown indication
     Route: 065
     Dates: start: 20250204
  2. XOLAIR [Suspect]
     Active Substance: OMALIZUMAB
     Route: 065
     Dates: start: 20250227, end: 20250227
  3. PREDNISONE [Concomitant]
     Active Substance: PREDNISONE

REACTIONS (11)
  - Peripheral swelling [Unknown]
  - Pruritus [Unknown]
  - Condition aggravated [Unknown]
  - Dermatitis [Unknown]
  - Blister [Unknown]
  - Insomnia [Unknown]
  - Dizziness [Unknown]
  - Oedema peripheral [Unknown]
  - Urticaria [Unknown]
  - Cough [Unknown]
  - Oedema [Unknown]
